FAERS Safety Report 8965548 (Version 1)
Quarter: 2012Q4

REPORT INFORMATION
  Report Type: Spontaneous
  Country: GB (occurrence: None)
  Receive Date: 20121205
  Receipt Date: 20121205
  Transmission Date: 20130627
  Serious: Yes (Life-Threatening, Disabling, Other)
  Sender: FDA-Public Use
  Company Number: 2012MA013740

PATIENT
  Age: 42 Year
  Sex: Female

DRUGS (1)
  1. CITALOPRAM HYDROBROMIDE [Suspect]
     Indication: DEPRESSION
     Dosage: 20 MG; ;PO
     Route: 048
     Dates: start: 20120910

REACTIONS (6)
  - Agoraphobia [None]
  - Hallucination [None]
  - Tremor [None]
  - Nightmare [None]
  - Psychiatric symptom [None]
  - Bipolar disorder [None]
